FAERS Safety Report 10050981 (Version 1)
Quarter: 2014Q2

REPORT INFORMATION
  Report Type: Spontaneous
  Country: CA (occurrence: CA)
  Receive Date: 20140401
  Receipt Date: 20140401
  Transmission Date: 20141212
  Serious: Yes (Other)
  Sender: FDA-Public Use
  Company Number: CA-GLAXOSMITHKLINE-B0981447A

PATIENT
  Sex: Female

DRUGS (13)
  1. RHYTHMOL [Suspect]
     Indication: PRODUCT USED FOR UNKNOWN INDICATION
     Route: 065
  2. LIPITOR [Suspect]
     Indication: PRODUCT USED FOR UNKNOWN INDICATION
     Dosage: 10MG PER DAY
     Route: 065
  3. ACTEMRA [Suspect]
     Indication: RHEUMATOID ARTHRITIS
     Route: 065
     Dates: start: 20100930
  4. SOTALOL [Concomitant]
  5. FLOVENT [Concomitant]
     Dosage: 1PUFF PER DAY
  6. SINGULAIR [Concomitant]
     Route: 048
  7. MULTIVITAMIN [Concomitant]
     Route: 048
  8. FOLIC ACID [Concomitant]
     Dosage: 1MG PER DAY
     Route: 048
  9. CALCIUM + VITAMIN D [Concomitant]
     Route: 048
  10. METHOTREXATE [Concomitant]
     Dosage: 10MG WEEKLY
     Route: 058
  11. PREDNISONE [Concomitant]
     Dosage: 5MG PER DAY
     Route: 048
  12. DIOVAN [Concomitant]
  13. TYLENOL [Concomitant]
     Dosage: 500MG AS REQUIRED

REACTIONS (2)
  - Haematochezia [Unknown]
  - Abdominal discomfort [Unknown]
